FAERS Safety Report 4272604-0 (Version None)
Quarter: 2004Q1

REPORT INFORMATION
  Report Type: 
  Country: None (occurrence: None)
  Receive Date: 20040114
  Receipt Date: 20040114
  Transmission Date: 20041129
  Serious: Yes (Other)
  Sender: FDA-Public Use
  Company Number: None

PATIENT
  Age: 41 Year
  Sex: Female

DRUGS (2)
  1. EPIPEN [Suspect]
     Indication: ANAPHYLACTIC REACTION
  2. EPIPEN [Suspect]

REACTIONS (1)
  - DEVICE FAILURE [None]
